FAERS Safety Report 6125694-4 (Version None)
Quarter: 2009Q1

REPORT INFORMATION
  Report Type: 
  Country: None (occurrence: None)
  Receive Date: 20090317
  Receipt Date: 20090302
  Transmission Date: 20090719
  Serious: Yes (Hospitalization)
  Sender: FDA-Public Use
  Company Number: 2009S1003558

PATIENT
  Age: 45 Year
  Sex: Male

DRUGS (8)
  1. ENALAPRIL MALEATE [Suspect]
     Indication: CEREBROVASCULAR ACCIDENT
     Dosage: 20 MG;
     Dates: start: 20000101, end: 20081211
  2. AMLODIPINE BESYLATE [Concomitant]
  3. ASPIRIN [Concomitant]
  4. ATORVASTATIN [Concomitant]
  5. DIPYRIDAMOLE [Concomitant]
  6. LANTUS [Concomitant]
  7. NOVORAPID [Concomitant]
  8. ENALAPRIL [Concomitant]

REACTIONS (4)
  - BACK DISORDER [None]
  - DYSPNOEA [None]
  - RASH [None]
  - SWELLING FACE [None]
